FAERS Safety Report 4540254-4 (Version None)
Quarter: 2004Q4

REPORT INFORMATION
  Report Type: 
  Country: None (occurrence: None)
  Receive Date: 20041223
  Receipt Date: 20041025
  Transmission Date: 20050328
  Serious: No
  Sender: FDA-Public Use
  Company Number: US-JNJFOC-20041007960

PATIENT
  Age: 17 Year
  Sex: Female
  Weight: 72.5755 kg

DRUGS (5)
  1. ORTHO EVRA [Suspect]
     Indication: MENSTRUATION IRREGULAR
     Dosage: 1 DOSE (S), 3 IN 4 WEEK, TRANSDERMAL
     Route: 062
     Dates: start: 20040801
  2. FLONASE [Concomitant]
  3. MOTRIN [Concomitant]
  4. ALBUTEROL [Concomitant]
  5. KEFLEX [Concomitant]

REACTIONS (1)
  - APPLICATION SITE DERMATITIS [None]
